FAERS Safety Report 5224097-4 (Version None)
Quarter: 2007Q1

REPORT INFORMATION
  Report Type: 
  Country: None (occurrence: None)
  Receive Date: 20070130
  Receipt Date: 20070119
  Transmission Date: 20070707
  Serious: Yes (Life-Threatening, Hospitalization)
  Sender: FDA-Public Use
  Company Number: US-ROCHE-454427

PATIENT
  Age: 61 Year
  Sex: Female
  Weight: 65.3 kg

DRUGS (9)
  1. PEGASYS [Suspect]
     Dosage: PATIENT WAS OFF THERAPY FOR TEN DAYS.
     Route: 058
     Dates: start: 20060426
  2. PEGASYS [Suspect]
     Route: 058
     Dates: end: 20061115
  3. PEGASYS [Suspect]
     Route: 058
     Dates: start: 20061115
  4. PEGASYS [Suspect]
     Route: 058
  5. RIBAVIRIN [Suspect]
     Dosage: FREQUENCY REPORTED AS 5/D. PATIENT WAS OFF THERAPY FOR TEN DAYS.
     Route: 048
     Dates: start: 20060426
  6. RIBAVIRIN [Suspect]
     Dosage: FREQUENCY REPORTED AS 5/D.
     Route: 048
  7. HYDROCHLOROTHIAZIDE [Suspect]
     Indication: HYPERTENSION
     Dosage: DRUG REPORTED AS SPIRONOLACTONE ALDACTONE/ HCTZ. STRENGTH REPORTED AS 25. FREQUENCY REPORTED AS 2/D.
     Route: 048
     Dates: end: 20060526
  8. ALDACTONE [Suspect]
     Indication: HYPERTENSION
     Route: 048
     Dates: end: 20060526
  9. SYNTHROID [Concomitant]
     Indication: HYPOTHYROIDISM
     Route: 048

REACTIONS (16)
  - ASTHENIA [None]
  - BLOOD CHLORIDE DECREASED [None]
  - CONFUSIONAL STATE [None]
  - DEHYDRATION [None]
  - DIARRHOEA [None]
  - DIZZINESS [None]
  - FATIGUE [None]
  - HAEMOGLOBIN DECREASED [None]
  - HYPOKALAEMIA [None]
  - HYPONATRAEMIA [None]
  - HYPOTENSION [None]
  - NAUSEA [None]
  - NEUTROPHIL COUNT DECREASED [None]
  - PLATELET COUNT DECREASED [None]
  - THYROID FUNCTION TEST ABNORMAL [None]
  - WHITE BLOOD CELL COUNT DECREASED [None]
